FAERS Safety Report 11410895 (Version 1)
Quarter: 2015Q3

REPORT INFORMATION
  Report Type: Spontaneous
  Country: JP (occurrence: JP)
  Receive Date: 20150824
  Receipt Date: 20150824
  Transmission Date: 20151125
  Serious: Yes (Other)
  Sender: FDA-Public Use
  Company Number: JP-MYLANLABS-2015M1027804

PATIENT

DRUGS (7)
  1. UROKINASE [Concomitant]
     Active Substance: UROKINASE
     Indication: PRODUCT USED FOR UNKNOWN INDICATION
     Dosage: 1.8 X 10E5 UNITS/DAY
     Route: 065
  2. ARGATROBAN INJECTION [Suspect]
     Active Substance: ARGATROBAN
     Dosage: HIGH-DOSE ARGATROBAN: 1.5 MG/MIN FOR 40 MINS
     Route: 041
  3. ARGATROBAN INJECTION [Suspect]
     Active Substance: ARGATROBAN
     Dosage: HIGH-DOSE ARGATROBAN: 1.0 MG/MIN FOR 30 MINS
     Route: 041
  4. ARGATROBAN. [Suspect]
     Active Substance: ARGATROBAN
     Indication: CEREBRAL INFARCTION
     Dosage: 60 MG/DAY (0.04 MG/MIN)
     Route: 065
  5. DEXTRAN [Concomitant]
     Active Substance: DEXTRAN
     Indication: PRODUCT USED FOR UNKNOWN INDICATION
     Dosage: 500ML/4 HOURS/DAY
  6. ARGATROBAN INJECTION [Suspect]
     Active Substance: ARGATROBAN
     Indication: CEREBRAL INFARCTION
     Dosage: HIGH-DOSE ARGATROBAN: 2.0 MG/MIN FOR 15 MINS
     Route: 041
  7. ARGATROBAN INJECTION [Suspect]
     Active Substance: ARGATROBAN
     Dosage: 10 MG/60MINS, TWICE DAILY
     Route: 041

REACTIONS (2)
  - Haemorrhagic infarction [Unknown]
  - Cerebral haemorrhage [Unknown]
